FAERS Safety Report 5276803-0 (Version None)
Quarter: 2007Q1

REPORT INFORMATION
  Report Type: 
  Country: None (occurrence: None)
  Receive Date: 20070327
  Receipt Date: 20070315
  Transmission Date: 20070707
  Serious: Yes (Hospitalization)
  Sender: FDA-Public Use
  Company Number: US-JNJFOC-20070304170

PATIENT
  Sex: Male
  Weight: 81.19 kg

DRUGS (4)
  1. DURAGESIC-100 [Suspect]
     Route: 062
  2. DURAGESIC-100 [Suspect]
     Indication: PAIN MANAGEMENT
     Route: 062
  3. HYDROCODONE [Concomitant]
     Indication: ANALGESIC EFFECT
     Route: 048
  4. VALIUM [Concomitant]
     Indication: ANXIETY
     Route: 048

REACTIONS (4)
  - ASTHENIA [None]
  - DRUG EFFECT DECREASED [None]
  - IMPAIRED WORK ABILITY [None]
  - INTERVERTEBRAL DISC DEGENERATION [None]
